FAERS Safety Report 9951689 (Version 1)
Quarter: 2014Q1

REPORT INFORMATION
  Report Type: Report from Study
  Country: US (occurrence: US)
  Receive Date: 20140304
  Receipt Date: 20140304
  Transmission Date: 20141002
  Serious: No
  Sender: FDA-Public Use
  Company Number: US-ABBVIE-13P-163-1071137-00

PATIENT
  Age: 46 Year
  Sex: Female

DRUGS (10)
  1. HUMIRA [Suspect]
     Indication: RHEUMATOID ARTHRITIS
     Dates: start: 20130318
  2. LEFLUNOMIDE [Concomitant]
     Indication: RHEUMATOID ARTHRITIS
  3. CELEBREX [Concomitant]
     Indication: ANTIINFLAMMATORY THERAPY
  4. ADDERALL [Concomitant]
     Indication: ATTENTION DEFICIT/HYPERACTIVITY DISORDER
  5. ZOLOFT [Concomitant]
     Indication: DEPRESSION
  6. MULTIVITAMIN [Concomitant]
     Indication: VITAMIN SUPPLEMENTATION
  7. B COMPLEX [Concomitant]
     Indication: VITAMIN SUPPLEMENTATION
  8. MAGNISUM [Concomitant]
     Indication: MINERAL SUPPLEMENTATION
  9. VITMAIN D [Concomitant]
     Indication: VITAMIN SUPPLEMENTATION
  10. PROBIOTIC [Concomitant]
     Indication: PROBIOTIC THERAPY

REACTIONS (1)
  - Sinusitis [Not Recovered/Not Resolved]
